FAERS Safety Report 24645886 (Version 1)
Quarter: 2024Q4

REPORT INFORMATION
  Report Type: Report from Study
  Country: US (occurrence: US)
  Receive Date: 20241121
  Receipt Date: 20241121
  Transmission Date: 20250115
  Serious: Yes (Hospitalization, Other)
  Sender: NOVARTIS
  Company Number: US-002147023-NVSC2024US143406

PATIENT
  Sex: Female

DRUGS (1)
  1. KESIMPTA [Suspect]
     Active Substance: OFATUMUMAB
     Indication: Product used for unknown indication
     Dosage: UNK
     Route: 065

REACTIONS (15)
  - Multiple sclerosis relapse [Unknown]
  - Feeling abnormal [Unknown]
  - Headache [Unknown]
  - Nasopharyngitis [Unknown]
  - Vomiting [Unknown]
  - Pain in extremity [Unknown]
  - Paraesthesia [Unknown]
  - Muscle strain [Unknown]
  - Condition aggravated [Unknown]
  - Fall [Unknown]
  - Lower limb fracture [Unknown]
  - Cyst [Unknown]
  - Tremor [Unknown]
  - Dysphemia [Unknown]
  - Gait disturbance [Unknown]
